FAERS Safety Report 9209979 (Version 1)
Quarter: 2013Q1

REPORT INFORMATION
  Report Type: Spontaneous
  Country: US (occurrence: None)
  Receive Date: 20120820
  Receipt Date: 20120820
  Transmission Date: 20140127
  Serious: No
  Sender: FDA-Public Use
  Company Number: 1000031003

PATIENT
  Age: 42 Year
  Sex: Female

DRUGS (6)
  1. VIIBRYD [Suspect]
     Indication: DEPRESSION
     Route: 048
     Dates: start: 20120330, end: 20120405
  2. VIIBRYD [Suspect]
     Indication: DEPRESSION
     Route: 048
     Dates: start: 20120413, end: 20120502
  3. METFORMIN (METFORMIN) (METFORMIN) [Concomitant]
  4. TOPAMAX (TOPIRAMATE) (TOPIRAMATE) [Concomitant]
  5. XANAX (ALPRAZOLAM) (ALPRAZOLAM) [Concomitant]
  6. VYVANSE (ISDEXAMFETAMINE) (LISDEXAMFETAMINE) [Concomitant]

REACTIONS (5)
  - Anger [None]
  - Nausea [None]
  - Tearfulness [None]
  - Crying [None]
  - Impulsive behaviour [None]
